FAERS Safety Report 8057813-7 (Version None)
Quarter: 2012Q1

REPORT INFORMATION
  Report Type: 
  Country: None (occurrence: None)
  Receive Date: 20120120
  Receipt Date: 20120113
  Transmission Date: 20120608
  Serious: No
  Sender: FDA-Public Use
  Company Number: US-BIOGENIDEC-2012BI001821

PATIENT
  Sex: Female

DRUGS (2)
  1. TYSABRI [Suspect]
     Indication: MULTIPLE SCLEROSIS
     Route: 042
     Dates: start: 20090723, end: 20110404
  2. TYSABRI [Suspect]
     Route: 042
     Dates: start: 20111208

REACTIONS (3)
  - SPEECH DISORDER [None]
  - FATIGUE [None]
  - HYPOAESTHESIA [None]
